FAERS Safety Report 5659219-4 (Version None)
Quarter: 2008Q1

REPORT INFORMATION
  Report Type: 
  Country: None (occurrence: None)
  Receive Date: 20080311
  Receipt Date: 20071017
  Transmission Date: 20080703
  Serious: No
  Sender: FDA-Public Use
  Company Number: US-BAYER-200711802BCC

PATIENT
  Age: 46 Year
  Sex: Female
  Weight: 64 kg

DRUGS (5)
  1. ALEVE [Suspect]
     Indication: ARTHRALGIA
     Dosage: UNIT DOSE: 220 MG
     Route: 048
     Dates: start: 20070603, end: 20070604
  2. PAMELOR [Concomitant]
  3. LYRICA [Concomitant]
  4. PROZAC [Concomitant]
  5. LEVOTHROID [Concomitant]

REACTIONS (4)
  - BONE PAIN [None]
  - COELIAC DISEASE [None]
  - FATIGUE [None]
  - MUSCLE ATROPHY [None]
